FAERS Safety Report 14534708 (Version 1)
Quarter: 2018Q1

REPORT INFORMATION
  Report Type: Spontaneous
  Country: US (occurrence: US)
  Receive Date: 20180214
  Receipt Date: 20180214
  Transmission Date: 20180509
  Serious: Yes (Hospitalization)
  Sender: FDA-Public Use
  Company Number: None

PATIENT
  Age: 83 Year
  Sex: Male

DRUGS (1)
  1. REVLIMID [Suspect]
     Active Substance: LENALIDOMIDE
     Indication: PLASMA CELL MYELOMA
     Route: 048
     Dates: start: 20171013, end: 20171120

REACTIONS (5)
  - Rash [None]
  - Pulmonary hypertension [None]
  - Atrial fibrillation [None]
  - Pulmonary embolism [None]
  - Urinary tract obstruction [None]

NARRATIVE: CASE EVENT DATE: 20171027
